FAERS Safety Report 21034432 (Version 4)
Quarter: 2022Q4

REPORT INFORMATION
  Report Type: Spontaneous
  Country: US (occurrence: US)
  Receive Date: 20220701
  Receipt Date: 20221122
  Transmission Date: 20230113
  Serious: No
  Sender: FDA-Public Use
  Company Number: US-BRISTOL-MYERS SQUIBB COMPANY-2022-067369

PATIENT
  Age: 76 Year
  Sex: Male

DRUGS (2)
  1. ORENCIA [Suspect]
     Active Substance: ABATACEPT
     Indication: Psoriasis
     Dosage: BATCH NUMBER: ACB8311, EXPIRY DATE: 30-NOV-2023
     Route: 058
     Dates: start: 20210330
  2. COVID-19 VACCINE NOS [Suspect]
     Active Substance: COVID-19 VACCINE NOS
     Indication: COVID-19 immunisation
     Route: 065

REACTIONS (5)
  - Onychomycosis [Unknown]
  - Urticaria [Unknown]
  - Rash pruritic [Unknown]
  - Intentional product use issue [Unknown]
  - Illness [Unknown]
